FAERS Safety Report 8025902-9 (Version None)
Quarter: 2012Q1

REPORT INFORMATION
  Report Type: 
  Country: None (occurrence: None)
  Receive Date: 20120105
  Receipt Date: 20110428
  Transmission Date: 20120608
  Serious: No
  Sender: FDA-Public Use
  Company Number: US-ABBOTT-11P-163-0722607-00

PATIENT
  Sex: Female
  Weight: 77.18 kg

DRUGS (5)
  1. SYNTHROID [Suspect]
     Dates: start: 20110409, end: 20110419
  2. SYNTHROID [Suspect]
     Dosage: ALTERNATE 125 MCG AND 150 MCG DAILY
     Dates: start: 20110420
  3. SYNTHROID [Suspect]
     Indication: HORMONE REPLACEMENT THERAPY
  4. COZAAR [Concomitant]
     Indication: BLOOD PRESSURE
  5. CALCIUM WITH VITAMIN D [Concomitant]
     Indication: PRODUCT USED FOR UNKNOWN INDICATION

REACTIONS (4)
  - NAUSEA [None]
  - WEIGHT INCREASED [None]
  - BLOOD THYROID STIMULATING HORMONE ABNORMAL [None]
  - FATIGUE [None]
